FAERS Safety Report 23257425 (Version 1)
Quarter: 2023Q4

REPORT INFORMATION
  Report Type: Spontaneous
  Country: US (occurrence: US)
  Receive Date: 20231204
  Receipt Date: 20231204
  Transmission Date: 20240109
  Serious: Yes (Hospitalization, Other)
  Sender: FDA-Public Use
  Company Number: US-MLMSERVICE-20231116-4666686-1

PATIENT
  Age: 77 Year
  Sex: Female

DRUGS (1)
  1. ATORVASTATIN [Suspect]
     Active Substance: ATORVASTATIN
     Indication: Transient ischaemic attack

REACTIONS (4)
  - Drug reaction with eosinophilia and systemic symptoms [Recovering/Resolving]
  - Hepatic function abnormal [Recovering/Resolving]
  - Renal impairment [Recovering/Resolving]
  - Off label use [Unknown]
